FAERS Safety Report 12917389 (Version 1)
Quarter: 2016Q4

REPORT INFORMATION
  Report Type: Report from Study
  Country: US (occurrence: US)
  Receive Date: 20161107
  Receipt Date: 20161107
  Transmission Date: 20170207
  Serious: Yes (Hospitalization, Other)
  Sender: FDA-Public Use
  Company Number: US-BAYER-2016-089328

PATIENT
  Age: 52 Year
  Sex: Female
  Weight: 58.5 kg

DRUGS (5)
  1. ADEMPAS [Suspect]
     Active Substance: RIOCIGUAT
     Indication: PULMONARY ARTERIAL HYPERTENSION
     Dosage: 1.5 MG, TID
     Route: 048
  2. ADEMPAS [Suspect]
     Active Substance: RIOCIGUAT
     Indication: PULMONARY ARTERIAL HYPERTENSION
     Dosage: UNK
     Route: 048
     Dates: start: 20160516
  3. ADEMPAS [Suspect]
     Active Substance: RIOCIGUAT
     Indication: PULMONARY ARTERIAL HYPERTENSION
     Dosage: 1 MG, TID
     Route: 048
  4. ADEMPAS [Suspect]
     Active Substance: RIOCIGUAT
     Indication: PULMONARY ARTERIAL HYPERTENSION
     Dosage: UNK
     Route: 048
     Dates: start: 201605
  5. ADEMPAS [Suspect]
     Active Substance: RIOCIGUAT
     Indication: PULMONARY ARTERIAL HYPERTENSION
     Dosage: 1.5 MG, TID
     Route: 048

REACTIONS (17)
  - Toe amputation [None]
  - Swelling [Unknown]
  - Toe operation [None]
  - Blood pressure diastolic decreased [None]
  - Peripheral swelling [None]
  - Seasonal allergy [Unknown]
  - Pain in extremity [Unknown]
  - Dysphagia [Unknown]
  - Constipation [None]
  - Cardiac failure [None]
  - Staphylococcal infection [Unknown]
  - Dyspnoea [Unknown]
  - Dizziness [Unknown]
  - Erythema [Unknown]
  - Fluid retention [Unknown]
  - Localised infection [Unknown]
  - Ear congestion [Unknown]

NARRATIVE: CASE EVENT DATE: 20160701
